FAERS Safety Report 7652530-7 (Version None)
Quarter: 2011Q3

REPORT INFORMATION
  Report Type: 
  Country: None (occurrence: None)
  Receive Date: 20110722
  Receipt Date: 20110513
  Transmission Date: 20111222
  Serious: Yes (Hospitalization)
  Sender: FDA-Public Use
  Company Number: UTC-007146

PATIENT
  Age: 52 Year
  Sex: Female

DRUGS (1)
  1. REMODULIN [Suspect]
     Indication: PULMONARY ARTERIAL HYPERTENSION
     Dosage: 162.72 UG/KG (0.113 UG/KG,1 IN 1 MIN), INTRAVENOUS
     Route: 042
     Dates: start: 20091201

REACTIONS (1)
  - PULMONARY ARTERIAL HYPERTENSION [None]
